FAERS Safety Report 7098011-3 (Version None)
Quarter: 2010Q4

REPORT INFORMATION
  Report Type: 
  Country: None (occurrence: None)
  Receive Date: 20101112
  Receipt Date: 20101022
  Transmission Date: 20110411
  Serious: No
  Sender: FDA-Public Use
  Company Number: US-BAYER-201038319NA

PATIENT
  Age: 17 Year
  Sex: Male

DRUGS (1)
  1. BETASERON [Suspect]
     Dates: start: 20101022, end: 20101022

REACTIONS (1)
  - INJURY ASSOCIATED WITH DEVICE [None]
